FAERS Safety Report 12215018 (Version 1)
Quarter: 2016Q1

REPORT INFORMATION
  Report Type: Report from Study
  Country: US (occurrence: US)
  Receive Date: 20160328
  Receipt Date: 20160328
  Transmission Date: 20160526
  Serious: Yes (Other)
  Sender: FDA-Public Use
  Company Number: US-ABBVIE-16P-163-1557861-00

PATIENT
  Age: 59 Year
  Sex: Female

DRUGS (2)
  1. HUMIRA [Suspect]
     Active Substance: ADALIMUMAB
     Indication: PSORIATIC ARTHROPATHY
     Route: 058
     Dates: start: 20160204
  2. HUMIRA [Suspect]
     Active Substance: ADALIMUMAB
     Indication: PSORIASIS

REACTIONS (13)
  - Laceration [Unknown]
  - Contusion [Unknown]
  - Bone pain [Unknown]
  - Pain in extremity [Unknown]
  - Gait disturbance [Unknown]
  - Anxiety [Unknown]
  - Limb discomfort [Unknown]
  - Fall [Unknown]
  - Pain [Unknown]
  - Arthralgia [Unknown]
  - Activities of daily living impaired [Unknown]
  - Depression [Unknown]
  - Musculoskeletal discomfort [Unknown]

NARRATIVE: CASE EVENT DATE: 2016
